FAERS Safety Report 6544957-1 (Version None)
Quarter: 2010Q1

REPORT INFORMATION
  Report Type: 
  Country: None (occurrence: None)
  Receive Date: 20100121
  Receipt Date: 20100114
  Transmission Date: 20100710
  Serious: Yes (Death, Life-Threatening)
  Sender: FDA-Public Use
  Company Number: JP-ROCHE-648345

PATIENT
  Sex: Male
  Weight: 62 kg

DRUGS (10)
  1. AVASTIN [Suspect]
     Indication: RECTAL CANCER RECURRENT
     Route: 041
     Dates: start: 20090603, end: 20090603
  2. AVASTIN [Suspect]
     Route: 041
     Dates: start: 20090617, end: 20090617
  3. AVASTIN [Suspect]
     Route: 041
     Dates: start: 20090701, end: 20090701
  4. ELPLAT [Concomitant]
     Route: 041
     Dates: start: 20090520, end: 20090701
  5. 5-FU [Concomitant]
     Route: 040
     Dates: start: 20090520, end: 20090701
  6. LEVOFOLINATE [Concomitant]
     Route: 041
     Dates: start: 20090520, end: 20090701
  7. OXYCONTIN [Concomitant]
     Dosage: DOSE FORM SUSTAINED RELEASED TABLETS.
     Route: 048
     Dates: start: 20090703, end: 20090801
  8. LOXONIN [Concomitant]
     Route: 048
     Dates: start: 20090517, end: 20090801
  9. MAGMITT [Concomitant]
     Route: 048
     Dates: start: 20090619, end: 20090801
  10. LASIX [Concomitant]
     Route: 048
     Dates: start: 20090701, end: 20090801

REACTIONS (3)
  - DISEASE PROGRESSION [None]
  - INTESTINAL PERFORATION [None]
  - RETROPERITONEAL ABSCESS [None]
